FAERS Safety Report 22036905 (Version 1)
Quarter: 2023Q1

REPORT INFORMATION
  Report Type: Spontaneous
  Country: IR (occurrence: IR)
  Receive Date: 20230225
  Receipt Date: 20230225
  Transmission Date: 20230418
  Serious: Yes (Hospitalization, Other)
  Sender: FDA-Public Use
  Company Number: IR-STRIDES ARCOLAB LIMITED-2023SP002597

PATIENT
  Age: 29 Year
  Sex: Female

DRUGS (2)
  1. LETROZOLE [Suspect]
     Active Substance: LETROZOLE
     Indication: Ovulation induction
     Dosage: UNK
     Route: 065
  2. CHORIONIC GONADOTROPIN [Suspect]
     Active Substance: CHORIOGONADOTROPIN ALFA
     Indication: Ovulation induction
     Dosage: UNK
     Route: 065

REACTIONS (3)
  - Heterotopic pregnancy [Unknown]
  - Ovarian hyperstimulation syndrome [Unknown]
  - Off label use [Unknown]
